FAERS Safety Report 5644899-X (Version None)
Quarter: 2008Q1

REPORT INFORMATION
  Report Type: 
  Country: None (occurrence: None)
  Receive Date: 20080229
  Receipt Date: 20071012
  Transmission Date: 20080703
  Serious: No
  Sender: FDA-Public Use
  Company Number: A0687566A

PATIENT
  Age: 49 Year
  Sex: Male

DRUGS (5)
  1. VALTREX [Suspect]
     Indication: GENITAL HERPES
     Dosage: 500MG PER DAY
     Route: 048
     Dates: end: 20071007
  2. RIBAVIRIN [Concomitant]
  3. INTERFERON [Concomitant]
  4. XANAX [Concomitant]
  5. CLONIDINE [Concomitant]

REACTIONS (2)
  - DIZZINESS [None]
  - NAUSEA [None]
